FAERS Safety Report 7382099-6 (Version None)
Quarter: 2011Q1

REPORT INFORMATION
  Report Type: 
  Country: None (occurrence: None)
  Receive Date: 20110329
  Receipt Date: 20110316
  Transmission Date: 20110831
  Serious: Yes (Other)
  Sender: FDA-Public Use
  Company Number: PHHY2011US15528

PATIENT
  Sex: Female
  Weight: 67 kg

DRUGS (5)
  1. DIOVAN [Concomitant]
     Indication: HYPERTENSION
     Dosage: 160 MG, UNK
     Route: 048
  2. PHOSLO [Concomitant]
     Dosage: UNK
     Route: 048
  3. ZOMETA [Suspect]
     Indication: MULTIPLE MYELOMA
     Dosage: 3-4 MG EVERY 4 WEEKS
     Route: 042
     Dates: start: 20080116, end: 20110222
  4. ATENOLOL [Concomitant]
     Indication: ATRIAL FLUTTER
     Dosage: 50 MG, UNK
     Route: 048
  5. VELCADE [Concomitant]
     Indication: MULTIPLE MYELOMA
     Dosage: 1.8 MG, EVERY 2 WEEKS
     Route: 042
     Dates: start: 20100220

REACTIONS (3)
  - PAIN IN JAW [None]
  - OSTEONECROSIS OF JAW [None]
  - TOOTH DISORDER [None]
